FAERS Safety Report 8951443 (Version 1)
Quarter: 2012Q4

REPORT INFORMATION
  Report Type: Spontaneous
  Country: GB (occurrence: None)
  Receive Date: 20121129
  Receipt Date: 20121129
  Transmission Date: 20130627
  Serious: Yes (Other)
  Sender: FDA-Public Use
  Company Number: AUR-APL-2012-05020

PATIENT
  Age: 5 Decade
  Sex: Male

DRUGS (3)
  1. RIBAVIRIN [Suspect]
     Indication: DRUG USE FOR UNKNOWN INDICATION
  2. PEGINTERFERON ALFA [Suspect]
     Indication: DRUG USE FOR UNKNOWN INDICATION
  3. TELAPREVIR [Suspect]
     Indication: DRUG USE FOR UNKNOWN INDICATION
     Route: 048

REACTIONS (3)
  - Rash [None]
  - Hepatic pain [None]
  - Vision blurred [None]
